FAERS Safety Report 6164251-0 (Version None)
Quarter: 2009Q2

REPORT INFORMATION
  Report Type: 
  Country: None (occurrence: None)
  Receive Date: 20090422
  Receipt Date: 20090416
  Transmission Date: 20091009
  Serious: Yes (Other)
  Sender: FDA-Public Use
  Company Number: CA-ABBOTT-09P-028-0568682-00

PATIENT
  Sex: Female
  Weight: 72.64 kg

DRUGS (14)
  1. HUMIRA [Suspect]
     Indication: RHEUMATOID ARTHRITIS
     Route: 058
     Dates: start: 20050510
  2. HUMIRA [Suspect]
  3. HUMIRA [Suspect]
  4. PREDNISONE [Concomitant]
     Indication: DRUG USE FOR UNKNOWN INDICATION
  5. LEVOTHYROXINE SODIUM [Concomitant]
     Indication: DRUG USE FOR UNKNOWN INDICATION
  6. INDAPAMIDE [Concomitant]
     Indication: DRUG USE FOR UNKNOWN INDICATION
  7. METHOTREXATE [Concomitant]
     Indication: DRUG USE FOR UNKNOWN INDICATION
  8. FOLIC ACID [Concomitant]
     Indication: DRUG USE FOR UNKNOWN INDICATION
  9. EFFEXOR [Concomitant]
     Indication: DRUG USE FOR UNKNOWN INDICATION
     Dates: start: 20060101
  10. ACTONEL [Concomitant]
     Indication: DRUG USE FOR UNKNOWN INDICATION
  11. PARIET [Concomitant]
     Indication: DRUG USE FOR UNKNOWN INDICATION
  12. AVAPRO [Concomitant]
     Indication: DRUG USE FOR UNKNOWN INDICATION
  13. TYLENOL XS [Concomitant]
     Indication: DRUG USE FOR UNKNOWN INDICATION
  14. ATASOL 30 [Concomitant]
     Indication: DRUG USE FOR UNKNOWN INDICATION

REACTIONS (3)
  - ARTHRITIS [None]
  - ARTICULAR CALCIFICATION [None]
  - URINARY TRACT INFECTION [None]
